FAERS Safety Report 11909090 (Version 1)
Quarter: 2016Q1

REPORT INFORMATION
  Report Type: Spontaneous
  Country: OM (occurrence: OM)
  Receive Date: 20160112
  Receipt Date: 20160112
  Transmission Date: 20160526
  Serious: Yes (Other)
  Sender: FDA-Public Use
  Company Number: OM-BRISTOL-MYERS SQUIBB COMPANY-BMS-2015-093265

PATIENT
  Age: 6 Week
  Sex: Female
  Weight: 3 kg

DRUGS (3)
  1. ETOPOSIDE. [Suspect]
     Active Substance: ETOPOSIDE
     Indication: HISTIOCYTOSIS HAEMATOPHAGIC
     Dosage: 150 MG/M2, Q2WK
     Route: 065
  2. DEXAMETHASONE. [Suspect]
     Active Substance: DEXAMETHASONE
     Indication: HISTIOCYTOSIS HAEMATOPHAGIC
     Dosage: 10 MG/M2, QD
     Route: 065
  3. CYCLOSPORIN [Concomitant]
     Active Substance: CYCLOSPORINE
     Indication: HISTIOCYTOSIS HAEMATOPHAGIC
     Dosage: 1.5 MG/KG, BID
     Route: 065

REACTIONS (5)
  - Off label use [Unknown]
  - Systolic anterior motion of mitral valve [Unknown]
  - Hypertrophic cardiomyopathy [Unknown]
  - Ventricular dysfunction [Unknown]
  - Mitral valve incompetence [Unknown]
